FAERS Safety Report 5593768-2 (Version None)
Quarter: 2007Q4

REPORT INFORMATION
  Report Type: 
  Country: None (occurrence: None)
  Receive Date: 20071218
  Receipt Date: 20061026
  Transmission Date: 20080405
  Serious: Yes (Hospitalization, Other)
  Sender: FDA-Public Use
  Company Number: 2005148717

PATIENT
  Age: 41 Year
  Sex: Female

DRUGS (2)
  1. BEXTRA [Suspect]
     Indication: ARTHRITIS
     Dosage: 40 MG (20 MG,2 IN 1 D),ORAL
     Route: 048
  2. BEXTRA [Suspect]
     Indication: FIBROMYALGIA
     Dosage: 40 MG (20 MG,2 IN 1 D),ORAL
     Route: 048

REACTIONS (1)
  - ACUTE MYOCARDIAL INFARCTION [None]
